FAERS Safety Report 8539997 (Version 2)
Quarter: 2012Q4

REPORT INFORMATION
  Report Type: 
  Country: US (occurrence: US)
  Receive Date: 20120502
  Receipt Date: 20120921
  Transmission Date: 20130627
  Serious: Yes (Hospitalization, Other)
  Sender: FDA-Public Use
  Company Number: US-SANOFI-AVENTIS-2012SA028195

PATIENT
  Age: 83 None
  Sex: Male
  Weight: 77.11 kg

DRUGS (5)
  1. PLAVIX [Suspect]
     Indication: ISCHEMIA CEREBRAL
     Route: 048
     Dates: start: 2007, end: 201203
  2. PLAVIX [Suspect]
     Indication: ISCHEMIA CEREBRAL
     Route: 048
     Dates: start: 201204
  3. ASPIRIN [Suspect]
     Indication: ARTHRITIS
     Dosage: He has taken 20-30 pills/day at times
     Route: 065
     Dates: start: 1970, end: 201203
  4. GLUCOSAMINE W/CHONDROITIN [Concomitant]
     Indication: ARTHRITIS
     Route: 065
  5. ATORVASTATIN [Concomitant]
     Route: 065

REACTIONS (25)
  - Monoclonal gammopathy [Unknown]
  - Gallbladder operation [Unknown]
  - Peripheral arterial occlusive disease [Unknown]
  - Muscular weakness [Unknown]
  - Ischaemia [Unknown]
  - Disease recurrence [Unknown]
  - Amnesia [Unknown]
  - Tremor [Unknown]
  - Memory impairment [Unknown]
  - Melaena [Unknown]
  - Faeces discoloured [Unknown]
  - Anaemia [Recovering/Resolving]
  - Dyspnoea [Recovering/Resolving]
  - Haemoglobin decreased [Recovering/Resolving]
  - Red blood cell count decreased [Recovering/Resolving]
  - Blood iron decreased [Recovering/Resolving]
  - Haemorrhage [Unknown]
  - Arthritis [Recovering/Resolving]
  - Polyarthritis [Recovering/Resolving]
  - Arthralgia [Recovering/Resolving]
  - Pain in extremity [Recovering/Resolving]
  - Joint crepitation [Recovering/Resolving]
  - Joint stiffness [Recovering/Resolving]
  - Therapeutic response unexpected [Unknown]
  - Inappropriate schedule of drug administration [Unknown]
